FAERS Safety Report 5932334-3 (Version None)
Quarter: 2008Q4

REPORT INFORMATION
  Report Type: 
  Country: None (occurrence: None)
  Receive Date: 20081027
  Receipt Date: 20081027
  Transmission Date: 20090506
  Serious: No
  Sender: FDA-Public Use
  Company Number: None

PATIENT

DRUGS (1)
  1. SPIRIVA [Suspect]
     Indication: CHRONIC OBSTRUCTIVE PULMONARY DISEASE
     Dosage: 1 CAPSULE CONTENTS INHALED 1 X EACG DAY PO
     Route: 048
     Dates: start: 20080101, end: 20081024

REACTIONS (2)
  - DEVICE BREAKAGE [None]
  - SENSATION OF FOREIGN BODY [None]
